FAERS Safety Report 24207714 (Version 2)
Quarter: 2024Q3

REPORT INFORMATION
  Report Type: Report from Study
  Country: US (occurrence: US)
  Receive Date: 20240814
  Receipt Date: 20240821
  Transmission Date: 20241017
  Serious: Yes (Other)
  Sender: AMGEN
  Company Number: US-AMGEN-USASL2024159398

PATIENT
  Age: 46 Year
  Sex: Female

DRUGS (15)
  1. BLINCYTO [Suspect]
     Active Substance: BLINATUMOMAB
     Indication: Product used for unknown indication
     Dosage: 9 MICROGRAM, CONTINUING, ONCE AT 10 ML/HR OVER 24 HOURS, CYCLE 1 DAY 1
     Route: 042
     Dates: start: 20240730, end: 20240731
  2. BLINCYTO [Suspect]
     Active Substance: BLINATUMOMAB
     Dosage: 9 MICROGRAM, CONTINUING, ONCE AT 10 ML/HR OVER 24 HOURS, CYCLE 1 DAY 2
     Route: 042
     Dates: start: 20240731, end: 20240801
  3. BLINCYTO [Suspect]
     Active Substance: BLINATUMOMAB
     Dosage: 9 MICROGRAM, CONTINUING, ONCE AT 10 ML/HR OVER 24 HOURS, CYCLE 1 DAY 3
     Route: 042
     Dates: start: 20240802, end: 20240803
  4. BLINCYTO [Suspect]
     Active Substance: BLINATUMOMAB
     Dosage: 9 MICROGRAM, CONTINUING, ONCE AT 10 ML/HR OVER 24 HOURS, CYCLE 1 DAY 4
     Route: 042
     Dates: start: 20240803, end: 20240804
  5. BLINCYTO [Suspect]
     Active Substance: BLINATUMOMAB
     Dosage: 9 MICROGRAM, CONTINUING, ONCE AT 10 ML/HR OVER 24 HOURS, CYCLE 1 DAY 5
     Route: 042
     Dates: start: 20240804, end: 20240805
  6. BLINCYTO [Suspect]
     Active Substance: BLINATUMOMAB
     Dosage: 9 MICROGRAM, CONTINUING, ONCE AT 10 ML/HR OVER 24 HOURS, CYCLE 1 DAY 6
     Route: 042
     Dates: start: 20240805, end: 20240806
  7. BLINCYTO [Suspect]
     Active Substance: BLINATUMOMAB
     Dosage: 9 MICROGRAM, CONTINUING, ONCE AT 10 ML/HR OVER 24 HOURS, CYCLE 1 DAY 7
     Route: 042
     Dates: start: 20240806, end: 20240807
  8. BLINCYTO [Suspect]
     Active Substance: BLINATUMOMAB
     Dosage: 28 MICROGRAM, CONTINUING, ONCE AT 10 ML/HR OVER 24 HOURS, CYCLE 1 DAY 8
     Route: 042
     Dates: start: 20240807, end: 20240808
  9. BLINCYTO [Suspect]
     Active Substance: BLINATUMOMAB
     Dosage: 28 MICROGRAM, CONTINUING, ONCE AT 10 ML/HR OVER 24 HOURS, CYCLE 1 DAY 9
     Route: 042
     Dates: start: 20240808, end: 20240809
  10. BLINCYTO [Suspect]
     Active Substance: BLINATUMOMAB
     Dosage: 28 MICROGRAM, CONTINUING, ONCE AT 10 ML/HR OVER 24 HOURS, CYCLE 1 DAY10
     Route: 042
     Dates: start: 20240809, end: 20240810
  11. BLINCYTO [Suspect]
     Active Substance: BLINATUMOMAB
     Dosage: 28 MICROGRAM, CONTINUING, ONCE AT 10 ML/HR OVER 24 HOURS, CYCLE 1 DAY 11
     Route: 042
     Dates: start: 20240810, end: 20240811
  12. BLINCYTO [Suspect]
     Active Substance: BLINATUMOMAB
     Dosage: 28 MICROGRAM, CONTINUING, ONCE AT 10 ML/HR OVER 24 HOURS, CYCLE 1 DAY 12
     Route: 042
     Dates: start: 20240811, end: 20240812
  13. BLINCYTO [Suspect]
     Active Substance: BLINATUMOMAB
     Dosage: 28 MICROGRAM, CONTINUING, ONCE AT 10 ML/HR OVER 24 HOURS, CYCLE 1 DAY 13
     Route: 042
     Dates: start: 20240812, end: 20240813
  14. BLINCYTO [Suspect]
     Active Substance: BLINATUMOMAB
     Dosage: 28 MICROGRAM, CONTINUING, ONCE AT 10 ML/HR OVER 24 HOURS, CYCLE 1 DAY 14
     Route: 042
     Dates: start: 20240813
  15. SODIUM CHLORIDE [Concomitant]
     Active Substance: SODIUM CHLORIDE
     Dosage: 0.9 PERCENT

REACTIONS (6)
  - Pancytopenia [Unknown]
  - Escherichia sepsis [Unknown]
  - Septic shock [Unknown]
  - Febrile neutropenia [Unknown]
  - Pneumonia [Unknown]
  - Ecthyma [Unknown]
